FAERS Safety Report 23316152 (Version 1)
Quarter: 2023Q4

REPORT INFORMATION
  Report Type: Spontaneous
  Country: ES (occurrence: ES)
  Receive Date: 20231219
  Receipt Date: 20231219
  Transmission Date: 20240110
  Serious: Yes (Life-Threatening, Hospitalization, Other)
  Sender: FDA-Public Use
  Company Number: None

PATIENT
  Age: 54 Year
  Sex: Male
  Weight: 68 kg

DRUGS (1)
  1. KEYTRUDA [Suspect]
     Active Substance: PEMBROLIZUMAB
     Indication: Lung cancer metastatic
     Dosage: 200 MG EVERY 21 DAYS
     Route: 042
     Dates: start: 20231107, end: 20231107

REACTIONS (3)
  - Pericarditis [Recovering/Resolving]
  - Immune-mediated myocarditis [Recovering/Resolving]
  - Immune-mediated lung disease [Recovering/Resolving]

NARRATIVE: CASE EVENT DATE: 20231111
